FAERS Safety Report 9144604 (Version 5)
Quarter: 2013Q2

REPORT INFORMATION
  Report Type: Spontaneous
  Country: PL (occurrence: PL)
  Receive Date: 20130306
  Receipt Date: 20130417
  Transmission Date: 20140414
  Serious: Yes (Death)
  Sender: FDA-Public Use
  Company Number: PL-ROCHE-1196058

PATIENT
  Age: 8 Month
  Sex: 0

DRUGS (2)
  1. LUCENTIS [Suspect]
     Indication: RETINOPATHY OF PREMATURITY
     Route: 050
  2. LUCENTIS [Suspect]
     Indication: OFF LABEL USE

REACTIONS (1)
  - Premature baby [Fatal]
